FAERS Safety Report 19966276 (Version 1)
Quarter: 2021Q4

REPORT INFORMATION
  Report Type: Report from Study
  Country: None (occurrence: US)
  Receive Date: 20211018
  Receipt Date: 20211018
  Transmission Date: 20220303
  Serious: Yes (Hospitalization)
  Sender: FDA-Public Use
  Company Number: US-ABBVIE-21P-163-4074132-00

PATIENT
  Age: 53 Year
  Sex: Male

DRUGS (6)
  1. VENETOCLAX [Suspect]
     Active Substance: VENETOCLAX
     Indication: Acute myeloid leukaemia
     Dosage: MOST RECENT DOSE PRIOR TO EVENTS: 05 SEP 2021
     Route: 048
  2. SENOKOT [Concomitant]
     Active Substance: SENNOSIDES
     Indication: Constipation
  3. MILK OF MAGNESIA [Concomitant]
     Active Substance: MAGNESIUM HYDROXIDE
     Indication: Constipation
  4. IDARUBICIN [Concomitant]
     Active Substance: IDARUBICIN
     Indication: Acute myeloid leukaemia
  5. FLUDARABINE [Concomitant]
     Active Substance: FLUDARABINE PHOSPHATE
     Indication: Acute myeloid leukaemia
  6. CYTARABINE HYDROCHLORIDE [Concomitant]
     Active Substance: CYTARABINE HYDROCHLORIDE
     Indication: Acute myeloid leukaemia

REACTIONS (2)
  - Enterococcal infection [Recovered/Resolved]
  - Proctalgia [Not Recovered/Not Resolved]

NARRATIVE: CASE EVENT DATE: 20210908
